FAERS Safety Report 8905560 (Version 1)
Quarter: 2012Q4

REPORT INFORMATION
  Report Type: 
  Country: GB (occurrence: GB)
  Receive Date: 20121113
  Receipt Date: 20121113
  Transmission Date: 20130627
  Serious: Yes (Other)
  Sender: FDA-Public Use
  Company Number: GB-BAYER-2012-118745

PATIENT
  Age: 76 Year
  Sex: Female

DRUGS (1)
  1. CANESTEN PESSARY [Suspect]
     Indication: PROLAPSE VAGINAL
     Dosage: 500 mg, UNK
     Dates: start: 201211

REACTIONS (2)
  - Vaginal haemorrhage [Not Recovered/Not Resolved]
  - Vaginal discharge [Recovered/Resolved]
